FAERS Safety Report 17040926 (Version 2)
Quarter: 2019Q4

REPORT INFORMATION
  Report Type: Spontaneous
  Country: US (occurrence: US)
  Receive Date: 20191118
  Receipt Date: 20191129
  Transmission Date: 20200122
  Serious: No
  Sender: FDA-Public Use
  Company Number: US-AMGEN-USASP2019188740

PATIENT
  Age: 71 Year
  Sex: Female
  Weight: 54.42 kg

DRUGS (1)
  1. NPLATE [Suspect]
     Active Substance: ROMIPLOSTIM
     Indication: IMMUNE THROMBOCYTOPENIC PURPURA
     Dosage: 250 MICROGRAM
     Route: 065
     Dates: start: 20190607

REACTIONS (1)
  - Intercepted medication error [Unknown]

NARRATIVE: CASE EVENT DATE: 20191025
